FAERS Safety Report 7642147-2 (Version None)
Quarter: 2011Q3

REPORT INFORMATION
  Report Type: 
  Country: None (occurrence: None)
  Receive Date: 20110727
  Receipt Date: 20110727
  Transmission Date: 20111222
  Serious: Yes (Hospitalization)
  Sender: FDA-Public Use
  Company Number: None

PATIENT

DRUGS (2)
  1. FOSAMAX [Suspect]
     Indication: OSTEOPOROSIS
     Dosage: 70MG Q WEEK PO
     Route: 048
     Dates: start: 19980101, end: 20090101
  2. RECLAST [Concomitant]

REACTIONS (2)
  - FALL [None]
  - FEMUR FRACTURE [None]
